FAERS Safety Report 16809290 (Version 1)
Quarter: 2019Q3

REPORT INFORMATION
  Report Type: Spontaneous
  Country: US (occurrence: US)
  Receive Date: 20190724
  Receipt Date: 20190724
  Transmission Date: 20191005
  Serious: No
  Sender: FDA-Public Use
  Company Number: None

PATIENT
  Age: 55 Year
  Sex: Female
  Weight: 90.72 kg

DRUGS (12)
  1. DICLOFENAC SODIUM. [Suspect]
     Active Substance: DICLOFENAC SODIUM
     Indication: BACK PAIN
     Dosage: ?          QUANTITY:1 DF DOSAGE FORM;?
     Route: 048
     Dates: start: 20190702, end: 20190702
  2. GABAPENTIN. [Concomitant]
     Active Substance: GABAPENTIN
  3. WELLBRUTIN [Concomitant]
  4. LACULOSE [Concomitant]
  5. IRON [Concomitant]
     Active Substance: IRON
  6. ASPIRIN. [Concomitant]
     Active Substance: ASPIRIN
  7. MELATONIN [Concomitant]
     Active Substance: MELATONIN
  8. ZANTAC [Concomitant]
     Active Substance: RANITIDINE HYDROCHLORIDE
  9. PRAZOSIN. [Concomitant]
     Active Substance: PRAZOSIN
  10. SPIRIVA [Concomitant]
     Active Substance: TIOTROPIUM BROMIDE MONOHYDRATE
  11. SEROQUEL [Concomitant]
     Active Substance: QUETIAPINE FUMARATE
  12. ADULT MULTI VITAMIN [Concomitant]

REACTIONS (4)
  - Nausea [None]
  - Back pain [None]
  - Gastrointestinal pain [None]
  - Cardiac discomfort [None]

NARRATIVE: CASE EVENT DATE: 20190702
